FAERS Safety Report 11146057 (Version 3)
Quarter: 2015Q3

REPORT INFORMATION
  Report Type: Spontaneous
  Country: US (occurrence: US)
  Receive Date: 20150528
  Receipt Date: 20150702
  Transmission Date: 20151125
  Serious: No
  Sender: FDA-Public Use
  Company Number: US-PFIZER INC-2015177040

PATIENT
  Age: 74 Year
  Sex: Male
  Weight: 63 kg

DRUGS (10)
  1. FINASTERIDE. [Concomitant]
     Active Substance: FINASTERIDE
     Indication: PROSTATIC DISORDER
     Dosage: 5 MG, UNK
  2. SPIRIVA RESPIMAT [Concomitant]
     Active Substance: TIOTROPIUM BROMIDE
     Dosage: INHALED 4GM, 2.5 ?G, UNK (INHALER)
     Route: 055
  3. KEFLEX [Concomitant]
     Active Substance: CEPHALEXIN
     Dosage: UNK
  4. SUTENT [Suspect]
     Active Substance: SUNITINIB MALATE
     Dosage: 37.5 MG, CYCLIC (37.5 MG 28 DAYS ON/14 DAYS OFF)
     Dates: start: 20150506
  5. LEVOTHYROXINE SODIUM. [Concomitant]
     Active Substance: LEVOTHYROXINE SODIUM
     Indication: THYROID DISORDER
     Dosage: 100 ?G, UNK
  6. HYDROCODNE/APAP [Concomitant]
     Dosage: UNK
  7. SUTENT [Suspect]
     Active Substance: SUNITINIB MALATE
     Indication: RENAL CANCER METASTATIC
     Dosage: 37.5 MG, 1X/DAY FOR 28 DAYS ON AND 14 DAYS OFF
     Dates: start: 20150506
  8. TESTOSTERONE. [Concomitant]
     Active Substance: TESTOSTERONE
     Indication: HYPOPITUITARISM
     Dosage: 2ML, CYCLIC EVERY 2 WEELS ( 200 MG/ML)
  9. PREDNISONE. [Concomitant]
     Active Substance: PREDNISONE
     Dosage: 5 MG, UNK
  10. PROAIR HFA [Concomitant]
     Active Substance: ALBUTEROL SULFATE
     Dosage: 90 ?G, UNK (INHALER)
     Route: 055

REACTIONS (39)
  - Back pain [Unknown]
  - Musculoskeletal chest pain [Unknown]
  - Cough [Unknown]
  - Palmar-plantar erythrodysaesthesia syndrome [Unknown]
  - Dysgeusia [Unknown]
  - Dysuria [Unknown]
  - Epistaxis [Unknown]
  - Joint swelling [Unknown]
  - Dyspnoea [Unknown]
  - Decreased appetite [Unknown]
  - Pollakiuria [Unknown]
  - Hair colour changes [Unknown]
  - Hyperhidrosis [Unknown]
  - Pruritus [Unknown]
  - Ageusia [Unknown]
  - Dry skin [Unknown]
  - Constipation [Unknown]
  - Mouth ulceration [Unknown]
  - Hyperaesthesia [Unknown]
  - Glossodynia [Unknown]
  - Denture wearer [Unknown]
  - Rash [Unknown]
  - Peripheral swelling [Unknown]
  - Anaemia [Unknown]
  - Headache [Unknown]
  - Oral pain [Unknown]
  - Productive cough [Unknown]
  - Abdominal pain [Unknown]
  - Paraesthesia [Unknown]
  - Pain [Not Recovered/Not Resolved]
  - Limb injury [Unknown]
  - Cyst [Unknown]
  - Skin discolouration [Unknown]
  - Insomnia [Unknown]
  - Pain in extremity [Unknown]
  - Fatigue [Unknown]
  - Impaired healing [Unknown]
  - Chest discomfort [Unknown]
  - Asthenia [Unknown]
